FAERS Safety Report 10204322 (Version 1)
Quarter: 2014Q2

REPORT INFORMATION
  Report Type: Spontaneous
  Country: US (occurrence: US)
  Receive Date: 20140529
  Receipt Date: 20140529
  Transmission Date: 20141212
  Serious: Yes (Hospitalization)
  Sender: FDA-Public Use
  Company Number: US-BAXTER-2014BAX026094

PATIENT
  Age: 15 Year
  Sex: Male

DRUGS (2)
  1. FEIBA NF [Suspect]
     Indication: PRODUCT USED FOR UNKNOWN INDICATION
     Dosage: ONE INFUSION VIA PUMP OVER 3 HOURS
     Route: 065
  2. FEIBA NF [Suspect]
     Route: 065

REACTIONS (2)
  - Renal haemorrhage [Recovering/Resolving]
  - Renal vascular thrombosis [Recovering/Resolving]
